FAERS Safety Report 7030135-9 (Version None)
Quarter: 2010Q4

REPORT INFORMATION
  Report Type: 
  Country: None (occurrence: None)
  Receive Date: 20101006
  Receipt Date: 20100930
  Transmission Date: 20110411
  Serious: Yes (Other)
  Sender: FDA-Public Use
  Company Number: ES-WYE-G06757510

PATIENT
  Age: 71 Year
  Sex: Female

DRUGS (5)
  1. TAZOCEL [Suspect]
     Indication: BRONCHITIS
     Route: 042
     Dates: start: 20100518, end: 20100602
  2. PANTOPRAZOLE [Concomitant]
     Route: 042
     Dates: start: 20100518, end: 20100528
  3. FUROSEMIDE [Concomitant]
     Indication: CARDIAC FAILURE CONGESTIVE
     Route: 042
     Dates: start: 20100517
  4. HEPARIN SODIUM [Concomitant]
     Route: 058
     Dates: start: 20100517
  5. METHYLPREDNISOLONE [Concomitant]
     Indication: BRONCHITIS
     Dosage: UNKNOWN
     Route: 065
     Dates: start: 20100518

REACTIONS (1)
  - HEPATOTOXICITY [None]
